FAERS Safety Report 14747377 (Version 3)
Quarter: 2018Q2

REPORT INFORMATION
  Report Type: Report from Study
  Country: US (occurrence: US)
  Receive Date: 20180411
  Receipt Date: 20180424
  Transmission Date: 20180711
  Serious: Yes (Hospitalization, Other)
  Sender: FDA-Public Use
  Company Number: US-AMGEN-USASL2018047717

PATIENT
  Age: 71 Year
  Sex: Female

DRUGS (2)
  1. ENBREL [Suspect]
     Active Substance: ETANERCEPT
     Indication: RHEUMATOID ARTHRITIS
     Dosage: 50 MG, QWK
     Route: 065
     Dates: start: 201802
  2. PREDNISONE. [Concomitant]
     Active Substance: PREDNISONE
     Dosage: 5 MG, QD

REACTIONS (10)
  - Urinary tract infection [Unknown]
  - Catheterisation cardiac [Unknown]
  - Post procedural complication [Unknown]
  - Catheter site haemorrhage [Unknown]
  - Stent placement [Unknown]
  - Thrombosis [Unknown]
  - Catheter site pain [Not Recovered/Not Resolved]
  - Procedural pain [Unknown]
  - Impaired driving ability [Not Recovered/Not Resolved]
  - Pyrexia [Not Recovered/Not Resolved]

NARRATIVE: CASE EVENT DATE: 2018
